FAERS Safety Report 12106287 (Version 1)
Quarter: 2016Q1

REPORT INFORMATION
  Report Type: Spontaneous
  Country: JP (occurrence: JP)
  Receive Date: 20160223
  Receipt Date: 20160223
  Transmission Date: 20160526
  Serious: Yes (Other)
  Sender: FDA-Public Use
  Company Number: JP-HQ SPECIALTY-JP-2016INT000066

PATIENT
  Sex: Female

DRUGS (4)
  1. CISPLATIN. [Suspect]
     Active Substance: CISPLATIN
     Indication: CERVIX CARCINOMA
     Dosage: 60 MG/M2, ON DAY ONE FOR PART OF THE SECOND COURSE
  2. NEDAPLATIN [Suspect]
     Active Substance: NEDAPLATIN
     Indication: CERVIX CARCINOMA
     Dosage: 80 MG/M2, DAY ONE FOR PART OF THE FIRST COURSE
  3. IRINOTECAN [Suspect]
     Active Substance: IRINOTECAN
     Indication: CERVIX CARCINOMA
     Dosage: 60 MG/M2, ON DAYS 1 AND 8 FOR PART OF THE FIRST COURSE
  4. IRINOTECAN [Suspect]
     Active Substance: IRINOTECAN
     Dosage: UNKNOWN DOSE FOR SECOND COURSE

REACTIONS (1)
  - Ovarian disorder [Unknown]
